FAERS Safety Report 8225506-9 (Version None)
Quarter: 2012Q1

REPORT INFORMATION
  Report Type: 
  Country: None (occurrence: None)
  Receive Date: 20120308
  Receipt Date: 20110329
  Transmission Date: 20120608
  Serious: Yes (Other)
  Sender: FDA-Public Use
  Company Number: 872815

PATIENT
  Age: 66 Year
  Sex: Female
  Weight: 96.36 kg

DRUGS (10)
  1. MORPHINE SULFATE [Suspect]
     Indication: PAIN
     Dosage: 30 MG, ONCE INTRAVENOUS (NOT OTHERWISE SPECIFIED)
     Route: 042
     Dates: start: 20110323, end: 20110323
  2. PROPOFOL [Suspect]
     Indication: SEDATION
     Dosage: SEE IMAGE
     Route: 011
     Dates: start: 20110323, end: 20110323
  3. PROPOFOL [Suspect]
     Indication: SURGERY
     Dosage: SEE IMAGE
     Route: 011
     Dates: start: 20110323, end: 20110323
  4. PROPOFOL [Suspect]
     Indication: SEDATION
     Dosage: SEE IMAGE
     Route: 011
     Dates: start: 20110323, end: 20110323
  5. PROPOFOL [Suspect]
     Indication: SURGERY
     Dosage: SEE IMAGE
     Route: 011
     Dates: start: 20110323, end: 20110323
  6. FENTANYL CITRATE [Suspect]
     Indication: SURGERY
     Dosage: SEE IMAGE
     Route: 042
     Dates: start: 20110323, end: 20110323
  7. FENTANYL CITRATE [Suspect]
     Indication: PAIN
     Dosage: SEE IMAGE
     Route: 042
     Dates: start: 20110323, end: 20110323
  8. FENTANYL CITRATE [Suspect]
     Indication: SURGERY
     Dosage: SEE IMAGE
     Route: 042
     Dates: start: 20110323, end: 20110323
  9. FENTANYL CITRATE [Suspect]
     Indication: PAIN
     Dosage: SEE IMAGE
     Route: 042
     Dates: start: 20110323, end: 20110323
  10. MORPHINE SUL INJ [Suspect]
     Indication: PAIN
     Dosage: 2 MG, ONCE INTRAVENOUS (NOT OTHERWISE SPECIFIED)
     Route: 042
     Dates: start: 20110323, end: 20110323

REACTIONS (1)
  - RESPIRATORY DEPRESSION [None]
